FAERS Safety Report 20867656 (Version 1)
Quarter: 2022Q2

REPORT INFORMATION
  Report Type: Spontaneous
  Country: US (occurrence: US)
  Receive Date: 20220524
  Receipt Date: 20220524
  Transmission Date: 20220721
  Serious: No
  Sender: FDA-Public Use
  Company Number: US-009507513-2205USA006017

PATIENT
  Sex: Female

DRUGS (3)
  1. KEYTRUDA [Suspect]
     Active Substance: PEMBROLIZUMAB
     Dosage: UNK
  2. LENVATINIB MESYLATE [Suspect]
     Active Substance: LENVATINIB MESYLATE
     Indication: Endometrial cancer metastatic
     Dosage: UNK
     Route: 048
     Dates: start: 20220303, end: 202205
  3. LENVATINIB MESYLATE [Suspect]
     Active Substance: LENVATINIB MESYLATE
     Dosage: 8 MILLIGRAM, QD
     Dates: start: 20220506

REACTIONS (6)
  - Adverse event [Unknown]
  - Cheilitis [Unknown]
  - Skin exfoliation [Unknown]
  - Diarrhoea [Unknown]
  - Arthralgia [Unknown]
  - Glossodynia [Unknown]

NARRATIVE: CASE EVENT DATE: 20220101
